FAERS Safety Report 5440556-3 (Version None)
Quarter: 2007Q3

REPORT INFORMATION
  Report Type: 
  Country: None (occurrence: None)
  Receive Date: 20070831
  Receipt Date: 20070822
  Transmission Date: 20080115
  Serious: Yes (Hospitalization)
  Sender: FDA-Public Use
  Company Number: FR-ABBOTT-07P-056-0378709-00

PATIENT
  Sex: Female

DRUGS (5)
  1. KALETRA [Suspect]
     Indication: HIV INFECTION
     Route: 048
     Dates: start: 20060401, end: 20070701
  2. DIDANOSINE [Concomitant]
     Indication: HIV INFECTION
     Route: 048
     Dates: start: 20030101, end: 20030101
  3. DIDANOSINE [Concomitant]
     Route: 048
     Dates: start: 20060101, end: 20070701
  4. LAMIVUDINE [Concomitant]
     Indication: HIV INFECTION
     Route: 048
     Dates: start: 20030101, end: 20030101
  5. LAMIVUDINE [Concomitant]
     Route: 048
     Dates: start: 20060101, end: 20070701

REACTIONS (3)
  - ASTHENIA [None]
  - HEPATIC FIBROSIS [None]
  - PORTAL HYPERTENSION [None]
